FAERS Safety Report 7933287-9 (Version None)
Quarter: 2011Q4

REPORT INFORMATION
  Report Type: 
  Country: None (occurrence: None)
  Receive Date: 20111122
  Receipt Date: 20111028
  Transmission Date: 20120403
  Serious: Yes (Other)
  Sender: FDA-Public Use
  Company Number: PHHY2011IT96617

PATIENT
  Sex: Female

DRUGS (1)
  1. VENLAFAXINE [Suspect]
     Indication: DEPRESSION
     Dosage: 75 MG, QD
     Route: 048
     Dates: start: 20100901, end: 20110930

REACTIONS (4)
  - HYPERCHOLESTEROLAEMIA [None]
  - TYPE 2 DIABETES MELLITUS [None]
  - BLOOD IRON INCREASED [None]
  - HYPERTRIGLYCERIDAEMIA [None]
